FAERS Safety Report 4877456-3 (Version None)
Quarter: 2006Q1

REPORT INFORMATION
  Report Type: 
  Country: None (occurrence: None)
  Receive Date: 20060109
  Receipt Date: 20051229
  Transmission Date: 20060701
  Serious: Yes (Other)
  Sender: FDA-Public Use
  Company Number: 2004EU000539

PATIENT
  Sex: Female

DRUGS (9)
  1. PROGRAF [Suspect]
     Indication: RENAL TRANSPLANT
     Dosage: /D, TRANSPLACENTAL
     Route: 064
     Dates: start: 20030929, end: 20040211
  2. VALSARTAN [Suspect]
     Dosage: 2.00 DF, UID/QD, TRANSPLACENTAL
     Route: 064
     Dates: start: 20030929, end: 20040114
  3. ZOMIG [Suspect]
     Dosage: /D, TRANSPLACENTAL
     Route: 064
     Dates: start: 20030929, end: 20040211
  4. NEORECORMON (EPOETIN BETA) [Suspect]
     Dosage: /D, TRANSPLACENTAL
     Route: 064
     Dates: start: 20030929, end: 20040211
  5. BURINEX () TABLET, 1MG [Suspect]
     Dosage: /D, TRANSPLACENTAL
     Route: 064
     Dates: start: 20030929, end: 20040211
  6. ATARAX [Concomitant]
  7. PROPRANOLOL [Concomitant]
  8. EFFERALGAN [Concomitant]
  9. SPECIAFOLDINE (FOLIC ACID) [Concomitant]

REACTIONS (8)
  - ABORTION INDUCED [None]
  - DRUG EXPOSURE DURING PREGNANCY [None]
  - FOETAL GROWTH RETARDATION [None]
  - FOETAL MOVEMENTS DECREASED [None]
  - OLIGOHYDRAMNIOS [None]
  - PLACENTAL INSUFFICIENCY [None]
  - ULTRASOUND ABDOMEN ABNORMAL [None]
  - ULTRASOUND KIDNEY ABNORMAL [None]
